FAERS Safety Report 7745273-2 (Version None)
Quarter: 2011Q3

REPORT INFORMATION
  Report Type: 
  Country: None (occurrence: None)
  Receive Date: 20110907
  Receipt Date: 20110822
  Transmission Date: 20111222
  Serious: Yes (Other)
  Sender: FDA-Public Use
  Company Number: JPI-P-016743

PATIENT
  Age: 63 Year
  Sex: Female
  Weight: 63.5036 kg

DRUGS (3)
  1. WELLBUTRIN [Concomitant]
  2. PROVIGIL [Concomitant]
  3. XYREM [Suspect]
     Indication: CATAPLEXY
     Dosage: (2 IN 1 D), ORAL 7.5 GM (3.75 MG, 2 IN 1 D), ORAL
     Route: 048
     Dates: start: 20030411

REACTIONS (4)
  - ENURESIS [None]
  - ARTHROPOD BITE [None]
  - INFLAMMATION [None]
  - OVARIAN CANCER [None]
